FAERS Safety Report 6838792-4 (Version None)
Quarter: 2010Q3

REPORT INFORMATION
  Report Type: 
  Country: None (occurrence: None)
  Receive Date: 20100713
  Receipt Date: 20070629
  Transmission Date: 20110219
  Serious: No
  Sender: FDA-Public Use
  Company Number: US-PFIZER INC-2007045633

PATIENT
  Sex: Female
  Weight: 72.6 kg

DRUGS (4)
  1. CHANTIX [Suspect]
     Indication: SMOKING CESSATION THERAPY
     Route: 048
     Dates: start: 20070501
  2. ALCOHOL [Interacting]
     Dates: start: 20070501
  3. LEVOXYL [Concomitant]
     Indication: THYROID DISORDER
  4. AMITRIPTYLINE HYDROCHLORIDE [Concomitant]
     Indication: SLEEP DISORDER

REACTIONS (1)
  - INHIBITORY DRUG INTERACTION [None]
